FAERS Safety Report 8076384-2 (Version None)
Quarter: 2012Q1

REPORT INFORMATION
  Report Type: 
  Country: None (occurrence: None)
  Receive Date: 20120127
  Receipt Date: 20120127
  Transmission Date: 20120608
  Serious: Yes (Hospitalization, Disabling)
  Sender: FDA-Public Use
  Company Number: None

PATIENT
  Age: 46 Year
  Sex: Female
  Weight: 74.842 kg

DRUGS (2)
  1. CYMBALTA [Suspect]
     Indication: DEPRESSION
     Route: 048
     Dates: start: 20110701, end: 20111003
  2. CYMBALTA [Concomitant]
     Indication: BACK PAIN
     Dosage: 1
     Route: 048

REACTIONS (11)
  - HEADACHE [None]
  - INSOMNIA [None]
  - VOMITING [None]
  - NAUSEA [None]
  - INFLUENZA [None]
  - TINNITUS [None]
  - ANGER [None]
  - AGITATION [None]
  - TREMOR [None]
  - IMPAIRED WORK ABILITY [None]
  - DIZZINESS [None]
